FAERS Safety Report 24359449 (Version 1)
Quarter: 2024Q3

REPORT INFORMATION
  Report Type: Report from Study
  Country: JP (occurrence: JP)
  Receive Date: 20240924
  Receipt Date: 20240924
  Transmission Date: 20241016
  Serious: Yes (Death, Life-Threatening)
  Sender: SHIONOGI
  Company Number: JP-shionogi-202400000047

PATIENT
  Age: 9 Decade
  Sex: Male
  Weight: 64.4 kg

DRUGS (25)
  1. CEFIDEROCOL [Suspect]
     Active Substance: CEFIDEROCOL
     Indication: Stenotrophomonas maltophilia pneumonia
     Route: 041
     Dates: start: 20240529, end: 20240611
  2. OMEPRAZOLE [Concomitant]
     Active Substance: OMEPRAZOLE
     Indication: Product used for unknown indication
     Route: 065
     Dates: end: 20240702
  3. BROMHEXINE HYDROCHLORIDE [Concomitant]
     Active Substance: BROMHEXINE HYDROCHLORIDE
     Indication: Product used for unknown indication
     Route: 065
     Dates: end: 20240702
  4. CARBAZOCHROME SODIUM SULFONATE [Concomitant]
     Active Substance: CARBAZOCHROME SODIUM SULFONATE
     Indication: Product used for unknown indication
     Route: 042
     Dates: end: 20240702
  5. TRANEXAMIC ACID [Concomitant]
     Active Substance: TRANEXAMIC ACID
     Indication: Product used for unknown indication
     Route: 065
     Dates: end: 20240702
  6. NEOPHAGEN [CYSTEINE;GLYCINE;GLYCYRRHIZIC ACID] [Concomitant]
     Indication: Product used for unknown indication
     Route: 042
     Dates: end: 20240702
  7. LACTEC D [CALCIUM CHLORIDE DIHYDRATE;GLUCOSE;POTASSIUM CHLORIDE;SODIUM [Concomitant]
     Indication: Product used for unknown indication
     Route: 065
     Dates: end: 20240606
  8. ELNEOPA NF NO.1 [Concomitant]
     Indication: Product used for unknown indication
     Route: 065
     Dates: end: 20240613
  9. ELNEOPA NF NO.1 [Concomitant]
     Route: 065
     Dates: start: 20240620, end: 20240702
  10. AMINO ACIDS\DEXTROSE\ELECTROLYTES NOS\VITAMINS [Concomitant]
     Active Substance: AMINO ACIDS\DEXTROSE\ELECTROLYTES NOS\VITAMINS
     Indication: Product used for unknown indication
     Route: 065
     Dates: start: 20240613, end: 20240620
  11. GUAIFENESIN [Concomitant]
     Active Substance: GUAIFENESIN
     Indication: Product used for unknown indication
     Route: 042
     Dates: end: 20240627
  12. SOLU-CORTEF [Concomitant]
     Active Substance: HYDROCORTISONE SODIUM SUCCINATE
     Indication: Product used for unknown indication
     Route: 065
     Dates: end: 20240610
  13. SOLU-CORTEF [Concomitant]
     Active Substance: HYDROCORTISONE SODIUM SUCCINATE
     Indication: Prophylaxis
     Route: 065
     Dates: start: 20240613, end: 20240702
  14. KCL CORRECTIVE [Concomitant]
     Indication: Product used for unknown indication
     Route: 065
     Dates: end: 20240701
  15. ALBUMIN HUMAN [Concomitant]
     Active Substance: ALBUMIN HUMAN
     Indication: Product used for unknown indication
     Route: 042
     Dates: end: 20240702
  16. HUMULIN R [Concomitant]
     Active Substance: INSULIN HUMAN
     Indication: Product used for unknown indication
     Route: 065
     Dates: end: 20240628
  17. SOYBEAN OIL [Concomitant]
     Active Substance: SOYBEAN OIL
     Indication: Product used for unknown indication
     Route: 065
     Dates: start: 20240610, end: 20240612
  18. MINOCYCLINE HYDROCHLORIDE [Concomitant]
     Active Substance: MINOCYCLINE HYDROCHLORIDE
     Indication: Stenotrophomonas maltophilia pneumonia
     Route: 065
     Dates: start: 20240531, end: 20240612
  19. NICARDIPINE HYDROCHLORIDE [Concomitant]
     Active Substance: NICARDIPINE HYDROCHLORIDE
     Indication: Product used for unknown indication
     Route: 065
     Dates: end: 20240608
  20. THROMBOMODULIN ALFA [Concomitant]
     Active Substance: THROMBOMODULIN ALFA
     Indication: Prophylaxis
     Route: 065
     Dates: start: 20240612, end: 20240626
  21. VANCOMYCIN HYDROCHLORIDE [Concomitant]
     Active Substance: VANCOMYCIN HYDROCHLORIDE
     Indication: Prophylaxis
     Route: 065
     Dates: start: 20240613, end: 20240702
  22. MEROPENEM [Concomitant]
     Active Substance: MEROPENEM
     Indication: Prophylaxis
     Route: 041
     Dates: start: 20240613, end: 20240702
  23. KENKETU GLOVENIN-I [Concomitant]
     Active Substance: HUMAN IMMUNOGLOBULIN G
     Indication: Prophylaxis
     Route: 065
     Dates: start: 20240613, end: 20240615
  24. LANDIOLOL HYDROCHLORIDE [Concomitant]
     Active Substance: LANDIOLOL HYDROCHLORIDE
     Indication: Prophylaxis
     Route: 041
     Dates: start: 20240615, end: 20240618
  25. NOREPINEPHRINE BITARTRATE [Concomitant]
     Active Substance: NOREPINEPHRINE BITARTRATE
     Indication: Prophylaxis
     Route: 065
     Dates: start: 20240615, end: 20240620

REACTIONS (5)
  - Staphylococcal infection [Fatal]
  - Disseminated intravascular coagulation [Fatal]
  - Multiple organ dysfunction syndrome [Fatal]
  - Disseminated intravascular coagulation [Recovering/Resolving]
  - Drug resistance [Unknown]

NARRATIVE: CASE EVENT DATE: 20240612
